FAERS Safety Report 5042171-2 (Version None)
Quarter: 2006Q2

REPORT INFORMATION
  Report Type: 
  Country: None (occurrence: None)
  Receive Date: 20060627
  Receipt Date: 20060608
  Transmission Date: 20061013
  Serious: Yes (Hospitalization)
  Sender: FDA-Public Use
  Company Number: US200606002974

PATIENT
  Age: 28 Year
  Sex: Male

DRUGS (1)
  1. CYMBALTA [Suspect]
     Dosage: 60 MG

REACTIONS (3)
  - CONVULSION [None]
  - MENTAL DISORDER [None]
  - THERAPY REGIMEN CHANGED [None]
